FAERS Safety Report 20069448 (Version 2)
Quarter: 2021Q4

REPORT INFORMATION
  Report Type: Other
  Country: US (occurrence: None)
  Receive Date: 20211115
  Receipt Date: 20211126
  Transmission Date: 20220304
  Serious: Yes (Other)
  Sender: FDA-Public Use
  Company Number: US-ROCHE-2731797

PATIENT
  Sex: Male

DRUGS (2)
  1. ALECENSA [Suspect]
     Active Substance: ALECTINIB HYDROCHLORIDE
     Indication: Bronchial carcinoma
     Dosage: TAKE 2 CAPSULE BY MOUTH TWICE A DAY
     Route: 048
     Dates: start: 20210803
  2. ALECENSA [Suspect]
     Active Substance: ALECTINIB HYDROCHLORIDE
     Dosage: TAKE 2 CAPSULE(S) BY MOUTH TWICE A DAY
     Route: 048

REACTIONS (8)
  - Neoplasm malignant [Unknown]
  - Hepatic cancer stage IV [Unknown]
  - Lymphadenopathy [Unknown]
  - Tremor [Unknown]
  - Cognitive disorder [Unknown]
  - Asthenia [Unknown]
  - Illness [Unknown]
  - Confusional state [Unknown]
